FAERS Safety Report 25251207 (Version 1)
Quarter: 2025Q2

REPORT INFORMATION
  Report Type: Report from Study
  Country: US (occurrence: US)
  Receive Date: 20250429
  Receipt Date: 20250429
  Transmission Date: 20250716
  Serious: Yes (Other)
  Sender: OTSUKA
  Company Number: US-MMM-Otsuka-RHN2FYVE

PATIENT
  Age: 66 Year
  Sex: Male
  Weight: 121.54 kg

DRUGS (1)
  1. TOLVAPTAN [Suspect]
     Active Substance: TOLVAPTAN
     Indication: Congenital cystic kidney disease
     Route: 065
     Dates: start: 20250322, end: 20250404

REACTIONS (6)
  - Pruritus [Not Recovered/Not Resolved]
  - Polyuria [Unknown]
  - Thirst [Unknown]
  - Rash [Unknown]
  - Oedema [Unknown]
  - Blood creatinine increased [Unknown]

NARRATIVE: CASE EVENT DATE: 20250325
